FAERS Safety Report 9934625 (Version 4)
Quarter: 2014Q2

REPORT INFORMATION
  Report Type: Spontaneous
  Country: FR (occurrence: FR)
  Receive Date: 20140228
  Receipt Date: 20140604
  Transmission Date: 20141212
  Serious: Yes (Other)
  Sender: FDA-Public Use
  Company Number: FR-GLAXOSMITHKLINE-B0971245A

PATIENT
  Sex: Male

DRUGS (2)
  1. NICORETTE MINI LOZENGE, 2MG [Suspect]
     Indication: SMOKING CESSATION THERAPY
     Route: 002
     Dates: start: 2013
  2. NIQUITIN CQ LOZENGE, MINT [Suspect]
     Indication: SMOKING CESSATION THERAPY
     Route: 002
     Dates: start: 201312

REACTIONS (4)
  - Diabetes mellitus inadequate control [Not Recovered/Not Resolved]
  - Hyperglycaemia [Not Recovered/Not Resolved]
  - Hiccups [Not Recovered/Not Resolved]
  - Wrong technique in drug usage process [Unknown]
